FAERS Safety Report 10196839 (Version 1)
Quarter: 2014Q2

REPORT INFORMATION
  Report Type: Spontaneous
  Country: JP (occurrence: JP)
  Receive Date: 20140527
  Receipt Date: 20140527
  Transmission Date: 20141212
  Serious: Yes (Death)
  Sender: FDA-Public Use
  Company Number: JP-BAYER-2014-073146

PATIENT
  Age: 77 Year
  Sex: Male

DRUGS (1)
  1. BAYASPIRIN [Suspect]
     Dosage: UNK
     Route: 048
     Dates: start: 201301, end: 201303

REACTIONS (1)
  - Toxic epidermal necrolysis [Fatal]
